FAERS Safety Report 6590536-X (Version None)
Quarter: 2010Q1

REPORT INFORMATION
  Report Type: 
  Country: None (occurrence: None)
  Receive Date: 20100219
  Receipt Date: 20100208
  Transmission Date: 20100710
  Serious: Yes (Other)
  Sender: FDA-Public Use
  Company Number: ES-PFIZER INC-2010015864

PATIENT
  Age: 45 Year
  Sex: Female

DRUGS (3)
  1. LYRICA [Suspect]
     Dosage: 75 MG, 2X/DAY
     Route: 048
     Dates: start: 20100121, end: 20100126
  2. PARACETAMOL [Concomitant]
  3. NOLOTIL /SPA/ [Concomitant]

REACTIONS (4)
  - ANXIETY [None]
  - INSOMNIA [None]
  - PALPITATIONS [None]
  - TREMOR [None]
